FAERS Safety Report 7842914-6 (Version None)
Quarter: 2011Q4

REPORT INFORMATION
  Report Type: 
  Country: None (occurrence: None)
  Receive Date: 20111025
  Receipt Date: 20111012
  Transmission Date: 20120403
  Serious: Yes (Hospitalization, Other)
  Sender: FDA-Public Use
  Company Number: US-BAYER-2011-006876

PATIENT
  Age: 30 Year
  Sex: Female

DRUGS (4)
  1. CALCIUM CARBONATE [Concomitant]
     Indication: GENERAL PHYSICAL HEALTH DETERIORATION
  2. MOTRIN [Concomitant]
     Indication: HEADACHE
  3. YAZ [Suspect]
     Dosage: UNK
     Dates: start: 20071001, end: 20080401
  4. ASCORBIC ACID [Concomitant]
     Indication: GENERAL PHYSICAL HEALTH DETERIORATION

REACTIONS (11)
  - FEAR [None]
  - SYNCOPE [None]
  - EMOTIONAL DISTRESS [None]
  - ANXIETY [None]
  - NAUSEA [None]
  - COLD SWEAT [None]
  - CHOLECYSTECTOMY [None]
  - PAIN [None]
  - VOMITING [None]
  - MENTAL DISORDER [None]
  - INJURY [None]
